FAERS Safety Report 12764714 (Version 8)
Quarter: 2017Q2

REPORT INFORMATION
  Report Type: Report from Study
  Country: UA (occurrence: UA)
  Receive Date: 20160921
  Receipt Date: 20170427
  Transmission Date: 20170830
  Serious: Yes (Death, Life-Threatening, Other)
  Sender: FDA-Public Use
  Company Number: US-BRISTOL-MYERS SQUIBB COMPANY-BMS-2016-076905

PATIENT
  Age: 12 Year
  Sex: Male

DRUGS (8)
  1. APIXABAN [Suspect]
     Active Substance: APIXABAN
     Indication: PRODUCT USED FOR UNKNOWN INDICATION
     Dosage: 10 MG, DAILY
     Route: 048
     Dates: start: 20160907, end: 20160908
  2. ASPARAGINASE [Suspect]
     Active Substance: ASPARAGINASE
     Indication: PRODUCT USED FOR UNKNOWN INDICATION
     Dosage: UNK
     Route: 065
  3. METHOTREXATE SODIUM. [Suspect]
     Active Substance: METHOTREXATE SODIUM
     Indication: PRODUCT USED FOR UNKNOWN INDICATION
     Dosage: 1540 MG, UNK
     Route: 042
     Dates: start: 20160830, end: 20160831
  4. APIXABAN [Suspect]
     Active Substance: APIXABAN
     Indication: PRODUCT USED FOR UNKNOWN INDICATION
     Dosage: 10 MG, DAILY
     Route: 048
     Dates: start: 20160908
  5. CYTARABINE. [Suspect]
     Active Substance: CYTARABINE
     Indication: PRODUCT USED FOR UNKNOWN INDICATION
     Dosage: 1 DF, BID
     Route: 042
     Dates: start: 20160902, end: 20160903
  6. VINCRISTINE SULFATE. [Suspect]
     Active Substance: VINCRISTINE SULFATE
     Indication: PRODUCT USED FOR UNKNOWN INDICATION
     Dosage: 2 MG, UNK
     Route: 042
     Dates: start: 20160830, end: 20160904
  7. PEGASPARGASE [Suspect]
     Active Substance: PEGASPARGASE
     Indication: PRODUCT USED FOR UNKNOWN INDICATION
     Dosage: 1540 U, UNK
     Route: 042
     Dates: start: 20160904, end: 20160904
  8. APIXABAN [Suspect]
     Active Substance: APIXABAN
     Indication: THROMBOSIS PROPHYLAXIS
     Dosage: 10 MG, DAILY
     Route: 048
     Dates: start: 20160728, end: 20160906

REACTIONS (13)
  - Ileus paralytic [Fatal]
  - Fungal infection [Fatal]
  - Gastrointestinal disorder [Unknown]
  - Multiple organ dysfunction syndrome [Fatal]
  - Hypocoagulable state [Recovered/Resolved]
  - Acute lymphocytic leukaemia [Fatal]
  - Meningitis [Fatal]
  - Febrile neutropenia [Fatal]
  - Drug-induced liver injury [Recovered/Resolved]
  - Sepsis [Fatal]
  - Respiratory failure [Fatal]
  - Bone marrow failure [Fatal]
  - Cardiovascular insufficiency [Fatal]

NARRATIVE: CASE EVENT DATE: 20160905
